FAERS Safety Report 7289595-0 (Version None)
Quarter: 2011Q1

REPORT INFORMATION
  Report Type: 
  Country: None (occurrence: None)
  Receive Date: 20110125
  Receipt Date: 20101231
  Transmission Date: 20110831
  Serious: Yes (Death)
  Sender: FDA-Public Use
  Company Number: AUR-APL-2011-00049

PATIENT
  Age: 42 Year
  Sex: Female

DRUGS (2)
  1. CITALOPRAM [Suspect]
  2. ACETAMINOPHEN AND OXYCODONE HCL [Suspect]

REACTIONS (5)
  - INTENTIONAL DRUG MISUSE [None]
  - COMPLETED SUICIDE [None]
  - RESPIRATORY ARREST [None]
  - CARDIAC ARREST [None]
  - TOXICITY TO VARIOUS AGENTS [None]
